FAERS Safety Report 18642303 (Version 1)
Quarter: 2020Q4

REPORT INFORMATION
  Report Type: Spontaneous
  Country: US (occurrence: US)
  Receive Date: 20201218
  Receipt Date: 20201218
  Transmission Date: 20210114
  Serious: Yes (Life-Threatening, Hospitalization, Other)
  Sender: FDA-Public Use
  Company Number: None

PATIENT
  Age: 59 Year
  Sex: Female
  Weight: 103.5 kg

DRUGS (10)
  1. VALIUM [Concomitant]
     Active Substance: DIAZEPAM
  2. VITAMIN [Concomitant]
     Active Substance: VITAMINS
  3. PROTONIX [Concomitant]
     Active Substance: PANTOPRAZOLE SODIUM
  4. CARAFATE [Concomitant]
     Active Substance: SUCRALFATE
  5. COREG [Concomitant]
     Active Substance: CARVEDILOL
  6. XOPHENEX [Concomitant]
  7. 81MG ASPIRIN [Concomitant]
  8. AMILORIDE [Concomitant]
     Active Substance: AMILORIDE
  9. DULERA [Suspect]
     Active Substance: FORMOTEROL FUMARATE DIHYDRATE\MOMETASONE FUROATE
     Indication: ASTHMA
     Route: 055
     Dates: end: 20201213
  10. 55+ MULTI VITAMIN FOR WOMEN [Concomitant]

REACTIONS (7)
  - Arthralgia [None]
  - Myalgia [None]
  - Back pain [None]
  - Nasal congestion [None]
  - Gait inability [None]
  - Dry mouth [None]
  - Angioedema [None]

NARRATIVE: CASE EVENT DATE: 20201015
